FAERS Safety Report 21054935 (Version 6)
Quarter: 2022Q3

REPORT INFORMATION
  Report Type: Report from Study
  Country: FR (occurrence: FR)
  Receive Date: 20220707
  Receipt Date: 20220929
  Transmission Date: 20221027
  Serious: Yes (Other)
  Sender: FDA-Public Use
  Company Number: FR-GILEAD-2022-0575708

PATIENT
  Age: 68 Year
  Sex: Female
  Weight: 51 kg

DRUGS (5)
  1. SACITUZUMAB GOVITECAN [Suspect]
     Active Substance: SACITUZUMAB GOVITECAN
     Indication: HER2 negative breast cancer
     Dosage: 7.5 MG/KG, C3D1 AND D8
     Route: 042
     Dates: start: 20220429, end: 20220506
  2. SACITUZUMAB GOVITECAN [Suspect]
     Active Substance: SACITUZUMAB GOVITECAN
     Dosage: 10 MG/KG C2D1
     Route: 042
     Dates: start: 20220408, end: 20220408
  3. SACITUZUMAB GOVITECAN [Suspect]
     Active Substance: SACITUZUMAB GOVITECAN
     Dosage: 8 MG/KG C1D1
     Route: 042
     Dates: start: 20220318, end: 20220318
  4. SACITUZUMAB GOVITECAN [Suspect]
     Active Substance: SACITUZUMAB GOVITECAN
     Dosage: UNK
     Route: 042
     Dates: start: 20220708, end: 20220708
  5. SACITUZUMAB GOVITECAN [Suspect]
     Active Substance: SACITUZUMAB GOVITECAN
     Dosage: 7.5 MG/KG
     Route: 042
     Dates: end: 20220722

REACTIONS (7)
  - Thrombocytopenia [Recovered/Resolved]
  - Disease progression [Unknown]
  - Neutropenia [Recovered/Resolved]
  - Neutropenia [Recovered/Resolved]
  - Anaemia [Recovered/Resolved]
  - General physical condition abnormal [Unknown]
  - Off label use [Recovered/Resolved]

NARRATIVE: CASE EVENT DATE: 20220318
